FAERS Safety Report 8361679-5 (Version None)
Quarter: 2012Q2

REPORT INFORMATION
  Report Type: 
  Country: None (occurrence: None)
  Receive Date: 20120514
  Receipt Date: 20120427
  Transmission Date: 20120825
  Serious: Yes (Hospitalization, Other)
  Sender: FDA-Public Use
  Company Number: 2012P1018534

PATIENT
  Age: 65 Year
  Sex: Male

DRUGS (4)
  1. ASPIRIN [Concomitant]
  2. METOPROLOL [Concomitant]
  3. WARFARIN SODIUM [Suspect]
     Indication: ANTICOAGULANT THERAPY
     Dosage: UP TO 7.5 MG;QD;PO
     Route: 048
     Dates: start: 20100801, end: 20101215
  4. PLAVIX [Concomitant]

REACTIONS (5)
  - WEIGHT INCREASED [None]
  - OEDEMA PERIPHERAL [None]
  - DYSPNOEA [None]
  - CARDIAC FAILURE CONGESTIVE [None]
  - FLUID RETENTION [None]
